FAERS Safety Report 5952152-X (Version None)
Quarter: 2008Q4

REPORT INFORMATION
  Report Type: 
  Country: None (occurrence: None)
  Receive Date: 20081113
  Receipt Date: 20080716
  Transmission Date: 20090506
  Serious: No
  Sender: FDA-Public Use
  Company Number: A0737965A

PATIENT
  Age: 74 Year
  Sex: Female

DRUGS (8)
  1. CARVEDILOL [Suspect]
     Dosage: 25MG TWICE PER DAY
     Route: 048
  2. LISINOPRIL [Concomitant]
  3. ZOCOR [Concomitant]
  4. SYNTHROID [Concomitant]
  5. COUMADIN [Concomitant]
  6. LASIX [Concomitant]
  7. CENTRUM SILVER [Concomitant]
  8. CITRACAL [Concomitant]

REACTIONS (3)
  - DIARRHOEA [None]
  - DIZZINESS [None]
  - FATIGUE [None]
